FAERS Safety Report 9909269 (Version 1)
Quarter: 2014Q1

REPORT INFORMATION
  Report Type: Spontaneous
  Country: US (occurrence: None)
  Receive Date: 20140214
  Receipt Date: 20140214
  Transmission Date: 20141002
  Serious: No
  Sender: FDA-Public Use
  Company Number: None

PATIENT
  Age: 1 Day
  Sex: Male

DRUGS (6)
  1. HALOPERIDOL [Suspect]
     Route: 048
  2. MULTIVITAMIN [Concomitant]
  3. MARALAX [Concomitant]
  4. METFORMIN [Concomitant]
  5. LEVOTHYROXINE [Concomitant]
  6. GLYBURIDE [Concomitant]

REACTIONS (4)
  - Tremor [None]
  - Tachycardia [None]
  - Hyperhidrosis [None]
  - Extrapyramidal disorder [None]
